FAERS Safety Report 18451843 (Version 2)
Quarter: 2020Q4

REPORT INFORMATION
  Report Type: Spontaneous
  Country: US (occurrence: US)
  Receive Date: 20201102
  Receipt Date: 20201105
  Transmission Date: 20210114
  Serious: Yes (Disabling, Other)
  Sender: FDA-Public Use
  Company Number: US-TEVA-2020-US-1843424

PATIENT
  Age: 36 Year
  Sex: Female

DRUGS (7)
  1. DOCETAXEL HOSPIRA [Suspect]
     Active Substance: DOCETAXEL
     Indication: INVASIVE DUCTAL BREAST CARCINOMA
     Dosage: DOSAGE: 120MG, NUMBER OF CYCLE -06, FREQUENCY -EVERY THREE WEEKS
     Route: 042
     Dates: start: 20140930, end: 20150217
  2. HERCEPTIN [Suspect]
     Active Substance: TRASTUZUMAB
     Indication: INVASIVE DUCTAL BREAST CARCINOMA
     Dosage: TRASTUZUMAB 10MG, UNITS - 32
     Route: 042
     Dates: start: 20140930, end: 20150217
  3. PERJETA [Suspect]
     Active Substance: PERTUZUMAB
     Indication: INVASIVE DUCTAL BREAST CARCINOMA
     Route: 042
  4. DOCETAXEL ACTAVIS [Suspect]
     Active Substance: DOCETAXEL
     Indication: INVASIVE DUCTAL BREAST CARCINOMA
     Dosage: DOCETAXEL 1 MG, UNITS - 140; DOSAGE: 120MG, NUMBER OF CYCLE -06, FREQUENCY -EVERY THREE WEEKS
     Route: 042
     Dates: start: 20140930, end: 20150217
  5. DOCETAXEL SAGENT [Suspect]
     Active Substance: DOCETAXEL
     Indication: INVASIVE DUCTAL BREAST CARCINOMA
     Dosage: DOCETAXEL 1 MG, UNITS - 140; DOSAGE: 120MG, NUMBER OF CYCLE -06, FREQUENCY -EVERY THREE WEEKS
     Route: 042
     Dates: start: 20140930, end: 20150217
  6. CARBOPLATIN. [Suspect]
     Active Substance: CARBOPLATIN
     Indication: INVASIVE DUCTAL BREAST CARCINOMA
     Dosage: CARBOPLATIN 50MG, UNITS - 20
     Route: 042
     Dates: start: 20140930, end: 20150217
  7. NEULASTA [Concomitant]
     Active Substance: PEGFILGRASTIM
     Dosage: 6 MG

REACTIONS (14)
  - Bone pain [Unknown]
  - Alopecia [Not Recovered/Not Resolved]
  - Ejection fraction decreased [Recovered/Resolved]
  - Aspartate aminotransferase increased [Unknown]
  - Thrombocytopenia [Recovered/Resolved]
  - Oral pain [Recovered/Resolved]
  - Hair colour changes [Not Recovered/Not Resolved]
  - Abdominal pain upper [Recovered/Resolved]
  - Madarosis [Not Recovered/Not Resolved]
  - Alanine aminotransferase increased [Unknown]
  - Fatigue [Recovered/Resolved]
  - Diarrhoea [Recovered/Resolved]
  - Hair texture abnormal [Not Recovered/Not Resolved]
  - Nausea [Recovered/Resolved]

NARRATIVE: CASE EVENT DATE: 201410
